FAERS Safety Report 6475120-0 (Version None)
Quarter: 2009Q4

REPORT INFORMATION
  Report Type: 
  Country: None (occurrence: None)
  Receive Date: 20091204
  Receipt Date: 20090629
  Transmission Date: 20100525
  Serious: Yes (Hospitalization, Other)
  Sender: FDA-Public Use
  Company Number: US-ELI_LILLY_AND_COMPANY-US200903003425

PATIENT
  Sex: Female

DRUGS (12)
  1. CYMBALTA [Suspect]
     Indication: DEPRESSION
     Dosage: 40 MG, DAILY (1/D)
  2. CYMBALTA [Suspect]
     Dosage: 60 MG, UNK
  3. METHADONE [Concomitant]
  4. KLONOPIN [Concomitant]
  5. SEROQUEL [Concomitant]
  6. AMBIEN [Concomitant]
  7. RESTORIL [Concomitant]
  8. SYMBICORT [Concomitant]
     Indication: ASTHMA
  9. COMBIVENT [Concomitant]
  10. ADVAIR DISKUS 100/50 [Concomitant]
  11. ZYRTEC [Concomitant]
  12. NEXIUM [Concomitant]

REACTIONS (11)
  - CONVULSION [None]
  - CRYING [None]
  - DEPRESSED MOOD [None]
  - HEPATITIS B [None]
  - HEPATITIS C [None]
  - LIVER DISORDER [None]
  - LIVER FUNCTION TEST ABNORMAL [None]
  - MALAISE [None]
  - MEMORY IMPAIRMENT [None]
  - SUICIDE ATTEMPT [None]
  - TONGUE BITING [None]
